FAERS Safety Report 19678547 (Version 3)
Quarter: 2021Q3

REPORT INFORMATION
  Report Type: Spontaneous
  Country: NL (occurrence: NL)
  Receive Date: 20210810
  Receipt Date: 20210917
  Transmission Date: 20211014
  Serious: Yes (Other)
  Sender: FDA-Public Use
  Company Number: NL-TEVA-2021-NL-1940370

PATIENT
  Age: 80 Year
  Sex: Female
  Weight: 72 kg

DRUGS (1)
  1. LOSARTAN TABLET FO  50MG / BRAND NAME NOT SPECIFIED [Suspect]
     Active Substance: LOSARTAN
     Indication: HYPERTENSION
     Dosage: 50 MG (MILLIGRAM),THERAPY END DATE:ASKU
     Dates: start: 202001

REACTIONS (5)
  - Balance disorder [Recovering/Resolving]
  - Paraesthesia [Unknown]
  - Polyneuropathy [Unknown]
  - Gait disturbance [Recovering/Resolving]
  - Condition aggravated [Recovered/Resolved]

NARRATIVE: CASE EVENT DATE: 20200110
